FAERS Safety Report 15961225 (Version 2)
Quarter: 2019Q1

REPORT INFORMATION
  Report Type: Spontaneous
  Country: JP (occurrence: JP)
  Receive Date: 20190214
  Receipt Date: 20190318
  Transmission Date: 20190417
  Serious: Yes (Hospitalization)
  Sender: FDA-Public Use
  Company Number: JP-BAYER-2019-029890

PATIENT
  Sex: Female

DRUGS (2)
  1. ASPIRIN 100 % [Suspect]
     Active Substance: ASPIRIN
     Indication: CARDIAC OPERATION
     Dosage: 500 MG, TID
     Route: 048
  2. ASPIRIN 100 % [Suspect]
     Active Substance: ASPIRIN
     Indication: POST PROCEDURAL INFLAMMATION

REACTIONS (1)
  - Uterine prolapse repair [Unknown]
